FAERS Safety Report 19217092 (Version 1)
Quarter: 2021Q2

REPORT INFORMATION
  Report Type: Spontaneous
  Country: FR (occurrence: FR)
  Receive Date: 20210505
  Receipt Date: 20210505
  Transmission Date: 20210717
  Serious: Yes (Life-Threatening, Hospitalization)
  Sender: FDA-Public Use
  Company Number: FR-ACCORD-224125

PATIENT
  Age: 51 Year
  Sex: Male
  Weight: 66 kg

DRUGS (4)
  1. OXALIPLATIN ACCORD [Suspect]
     Active Substance: OXALIPLATIN
     Indication: PRODUCT USED FOR UNKNOWN INDICATION
     Dosage: 150 MG / TREATMENT
     Route: 042
     Dates: start: 20210202, end: 20210202
  2. ZENTIVA CALCIUM LEVOFOLINATE [Suspect]
     Active Substance: LEVOLEUCOVORIN CALCIUM
     Indication: CHEMOTHERAPY TOXICITY ATTENUATION
     Dosage: 358 MG / TREATMENT
     Route: 042
     Dates: start: 20210202, end: 20210202
  3. FLUOROURACIL ACCORD [Suspect]
     Active Substance: FLUOROURACIL
     Indication: RECTAL ADENOCARCINOMA
     Dosage: 3007.2 MG / TREATMENT?50 MG / ML
     Route: 042
     Dates: start: 20210202, end: 20210204
  4. IRINOTECAN MEDAC [Suspect]
     Active Substance: IRINOTECAN
     Indication: RECTAL ADENOCARCINOMA
     Dosage: 257.76 MG / TREATMENT
     Route: 042
     Dates: start: 20210202, end: 20210202

REACTIONS (3)
  - Enteritis [Recovering/Resolving]
  - Colitis [Recovering/Resolving]
  - Bone marrow failure [Recovering/Resolving]

NARRATIVE: CASE EVENT DATE: 20210210
